FAERS Safety Report 15172400 (Version 1)
Quarter: 2018Q3

REPORT INFORMATION
  Report Type: Spontaneous
  Country: US (occurrence: US)
  Receive Date: 20180720
  Receipt Date: 20180720
  Transmission Date: 20181010
  Serious: No
  Sender: FDA-Public Use
  Company Number: US-009507513-1807USA009030

PATIENT
  Sex: Female

DRUGS (2)
  1. PRINIVIL [Suspect]
     Active Substance: LISINOPRIL
     Route: 065
  2. PENICILLIN (UNSPECIFIED) [Suspect]
     Active Substance: PENICILLIN

REACTIONS (1)
  - Drug hypersensitivity [Unknown]
